FAERS Safety Report 7658319-7 (Version None)
Quarter: 2011Q3

REPORT INFORMATION
  Report Type: 
  Country: None (occurrence: None)
  Receive Date: 20110805
  Receipt Date: 20110802
  Transmission Date: 20111222
  Serious: Yes (Other)
  Sender: FDA-Public Use
  Company Number: US-PFIZER INC-2011145369

PATIENT
  Sex: Male

DRUGS (4)
  1. GEODON [Suspect]
     Indication: BIPOLAR I DISORDER
     Dosage: 40 MG, 1X/DAY
     Route: 048
     Dates: start: 20110429, end: 20110519
  2. ZYPREXA [Concomitant]
     Dosage: 7.5 MG, UNK
     Dates: start: 20090629, end: 20110527
  3. LAMICTAL [Concomitant]
     Dosage: 200 MG, UNK
     Dates: start: 20090629
  4. INDERAL [Concomitant]
     Dosage: 10 MG, 3X/DAY PRN
     Dates: start: 20090629

REACTIONS (3)
  - MUSCLE RIGIDITY [None]
  - HYPERHIDROSIS [None]
  - JOINT STIFFNESS [None]
